FAERS Safety Report 9013237 (Version 2)
Quarter: 2013Q1

REPORT INFORMATION
  Report Type: Spontaneous
  Country: US (occurrence: US)
  Receive Date: 20130115
  Receipt Date: 20130128
  Transmission Date: 20140127
  Serious: Yes (Other)
  Sender: FDA-Public Use
  Company Number: US-009507513-1301USA004230

PATIENT
  Sex: Female

DRUGS (2)
  1. NUVARING [Suspect]
     Indication: CONTRACEPTION
  2. ANTIMICROBIAL (UNSPECIFIED) [Concomitant]

REACTIONS (3)
  - Ectopic pregnancy [Unknown]
  - Unintended pregnancy [Unknown]
  - Pain [Unknown]
